FAERS Safety Report 8618957-1 (Version None)
Quarter: 2012Q3

REPORT INFORMATION
  Report Type: 
  Country: None (occurrence: None)
  Receive Date: 20120824
  Receipt Date: 20120810
  Transmission Date: 20120928
  Serious: Yes (Hospitalization, Other)
  Sender: FDA-Public Use
  Company Number: PHHY2011AU116326

PATIENT
  Sex: Female

DRUGS (30)
  1. ZOLEDRONOC ACID [Suspect]
     Dosage: 5 MG, UNK
     Route: 042
     Dates: start: 20100427
  2. ZOLEDRONOC ACID [Suspect]
     Dosage: 5 MG, UNK
     Route: 042
     Dates: start: 20110825
  3. OSMOTICALLY ACTING LAXATIVES/OSMOLAX [Concomitant]
     Dosage: 1 SCOOP DAILY, AS DIRECTED.
  4. SERETIDE MDI [Concomitant]
     Dosage: 1 DF TWICE A DAY
  5. SLOW-K [Concomitant]
     Dosage: 600 MG, TABLET, 2 DAILY
     Route: 048
  6. VENTOLIN NEBULES PF [Concomitant]
     Dosage: 5 MG/2.5 ML, EVERY 6 HRS
  7. LATANOPROST [Concomitant]
     Dosage: 50 UG/ML, 2 DROPS BEFORE BED
  8. FLUVAX [Concomitant]
     Dates: start: 20120323
  9. PANVAX H1N1 [Concomitant]
     Dates: start: 20100303
  10. INFLUVAC [Concomitant]
     Dates: start: 20100421
  11. SIMVASTATIN [Concomitant]
     Dosage: 10 MG TABLET, 1 BEFORE BED
     Route: 048
  12. FLUVAX [Concomitant]
     Dates: start: 20080311
  13. ZOLEDRONOC ACID [Suspect]
     Dosage: 5 MG, UNK
     Route: 042
     Dates: start: 20090401
  14. ACETAMINOPHEN [Concomitant]
     Dosage: 665 MG TABLET, 2 THREE TIMES PER DAY AS DIRECTED.
     Route: 048
  15. RHINOCORT [Concomitant]
     Dosage: 64 UG/DOSE, 2 SPRAYS TWICE A DAY
  16. LANOXIN [Concomitant]
     Dosage: 62.5 UG TABLET, 1 IN THE MORNING
     Route: 048
  17. SPIRIVA [Concomitant]
     Dosage: 18 UG, 1 DAILY AS DIRECTED
  18. CLARITHROMYCIN [Concomitant]
     Dosage: 250 MG TABLET, 1 DAILY WITH MEALS
     Route: 048
  19. OSTELIN [Concomitant]
     Dosage: 1000 IU, 1 DAILY AS DIRECTED
  20. VENTOLIN DISKUS [Concomitant]
     Dosage: 100 UG/DOSE, 2 PUFFS EVERY 4 HOURS
  21. FLUVAX [Concomitant]
     Dates: start: 20060308
  22. FLUVAX [Concomitant]
     Dates: start: 20110328
  23. PROGOUT [Concomitant]
     Dosage: 100 MG, TABLET, 1 DAILY AS DIRECTED
     Route: 048
  24. SINGULAIR [Concomitant]
     Dosage: 10 MG, TABLET, 1 DAILY AS DIRECTED
     Route: 048
  25. FLUVAX [Concomitant]
     Dates: start: 20090325
  26. ATACAND [Concomitant]
     Dosage: 4 MG TABLET, 1 DAILY
     Route: 048
  27. POLY-TEARS [Concomitant]
     Dosage: 0.3-0.1%, 4 TIMES A DAY AS DIRECTED
  28. VAXIGRIP [Concomitant]
     Dates: start: 20120403
  29. LASIX [Concomitant]
     Dosage: 40 MG TABLET, 1 IN THE MORNING
     Route: 048
  30. DABIGATRAN [Concomitant]
     Dosage: 110 MG, 1 TWICE A DAY

REACTIONS (4)
  - BRONCHIECTASIS [None]
  - VIRAL UPPER RESPIRATORY TRACT INFECTION [None]
  - INFLUENZA [None]
  - LOWER RESPIRATORY TRACT INFECTION [None]
